FAERS Safety Report 16134859 (Version 2)
Quarter: 2019Q2

REPORT INFORMATION
  Report Type: Spontaneous
  Country: US (occurrence: US)
  Receive Date: 20190329
  Receipt Date: 20190429
  Transmission Date: 20190711
  Serious: No
  Sender: FDA-Public Use
  Company Number: US-009507513-1903USA011341

PATIENT
  Sex: Male
  Weight: 67.13 kg

DRUGS (2)
  1. SINEMET [Suspect]
     Active Substance: CARBIDOPA\LEVODOPA
     Indication: PARKINSON^S DISEASE
     Dosage: 1.5 PILL (25/100 MG), THREE TIMES DAILY
     Route: 048
  2. SINEMET [Suspect]
     Active Substance: CARBIDOPA\LEVODOPA
     Dosage: ONE TABLET (25/100 MG) THREE TIMES A DAY
     Route: 048

REACTIONS (1)
  - Abdominal discomfort [Unknown]
